FAERS Safety Report 11121711 (Version 1)
Quarter: 2015Q2

REPORT INFORMATION
  Report Type: Spontaneous
  Country: US (occurrence: None)
  Receive Date: 20150518
  Receipt Date: 20150518
  Transmission Date: 20150821
  Serious: Yes (Hospitalization)
  Sender: FDA-Public Use
  Company Number: None

PATIENT
  Age: 50 Year
  Sex: Female
  Weight: 64.5 kg

DRUGS (9)
  1. OLANZAPINE. [Concomitant]
     Active Substance: OLANZAPINE
  2. VITAMIN D3 [Concomitant]
     Active Substance: CHOLECALCIFEROL
  3. HYDROXYUREA. [Concomitant]
     Active Substance: HYDROXYUREA
  4. LORAZEPAM. [Concomitant]
     Active Substance: LORAZEPAM
  5. FOLIC ACID. [Concomitant]
     Active Substance: FOLIC ACID
  6. FUROSEMIDE. [Concomitant]
     Active Substance: FUROSEMIDE
  7. TRAZODONE [Concomitant]
     Active Substance: TRAZODONE HYDROCHLORIDE
  8. METHADONE [Concomitant]
     Active Substance: METHADONE HYDROCHLORIDE
  9. EXJADE [Suspect]
     Active Substance: DEFERASIROX
     Indication: SICKLE CELL ANAEMIA
     Route: 048
     Dates: start: 20140404

REACTIONS (1)
  - Sickle cell anaemia with crisis [None]

NARRATIVE: CASE EVENT DATE: 201505
